FAERS Safety Report 6661092-2 (Version None)
Quarter: 2010Q1

REPORT INFORMATION
  Report Type: 
  Country: None (occurrence: None)
  Receive Date: 20100326
  Receipt Date: 20100316
  Transmission Date: 20100710
  Serious: Yes (Other)
  Sender: FDA-Public Use
  Company Number: B0639694A

PATIENT
  Age: 70 Year
  Sex: Female

DRUGS (1)
  1. ACITRETIN [Suspect]
     Indication: LEUKOPLAKIA ORAL
     Dosage: 25 MG/ PER DAY / ORAL
     Route: 048

REACTIONS (4)
  - DYSSTASIA [None]
  - GAIT DISTURBANCE [None]
  - MUSCLE SPASMS [None]
  - RECTAL HAEMORRHAGE [None]
